FAERS Safety Report 4278211-8 (Version None)
Quarter: 2004Q1

REPORT INFORMATION
  Report Type: 
  Country: None (occurrence: None)
  Receive Date: 20040121
  Receipt Date: 20040112
  Transmission Date: 20041129
  Serious: Yes (Other)
  Sender: FDA-Public Use
  Company Number: 2004-01-0384

PATIENT
  Age: 46 Year
  Sex: Male

DRUGS (4)
  1. BETAMETHASONE INJECTABLE SOLUTION [Suspect]
     Indication: POSTOPERATIVE CARE
     Dosage: 8 MG INTRAMUSCULAR
     Route: 030
     Dates: start: 20000901
  2. PREDNISONE [Suspect]
     Indication: CHEMOTHERAPY
     Dosage: 75 MD QD ORAL
     Route: 048
     Dates: start: 20000901
  3. CYCLOPHOSPHAMIDE [Concomitant]
  4. VINCRISTINE [Concomitant]

REACTIONS (5)
  - CHORIORETINAL DISORDER [None]
  - RETINAL DETACHMENT [None]
  - RETINOPATHY [None]
  - SCOTOMA [None]
  - VISION BLURRED [None]
